FAERS Safety Report 24978995 (Version 1)
Quarter: 2025Q1

REPORT INFORMATION
  Report Type: Spontaneous
  Country: US (occurrence: US)
  Receive Date: 20250218
  Receipt Date: 20250218
  Transmission Date: 20250408
  Serious: Yes (Other)
  Sender: ABBVIE
  Company Number: US-ABBVIE-6135445

PATIENT
  Sex: Female

DRUGS (1)
  1. RISANKIZUMAB [Suspect]
     Active Substance: RISANKIZUMAB
     Indication: Psoriatic arthropathy
     Route: 058
     Dates: start: 202406

REACTIONS (14)
  - Ovarian cancer recurrent [Unknown]
  - Blood cholesterol increased [Unknown]
  - Low density lipoprotein abnormal [Unknown]
  - Platelet count increased [Recovering/Resolving]
  - Drug ineffective [Unknown]
  - Thrombosis [Unknown]
  - Epistaxis [Recovering/Resolving]
  - Blood pressure fluctuation [Unknown]
  - Pain in extremity [Unknown]
  - Arthralgia [Recovering/Resolving]
  - Gene mutation identification test positive [Unknown]
  - Immunodeficiency [Unknown]
  - Illness [Unknown]
  - Cardiac disorder [Unknown]
